FAERS Safety Report 10242336 (Version 3)
Quarter: 2015Q1

REPORT INFORMATION
  Report Type: Spontaneous
  Country: DE (occurrence: DE)
  Receive Date: 20140617
  Receipt Date: 20150217
  Transmission Date: 20150720
  Serious: Yes (Death, Other)
  Sender: FDA-Public Use
  Company Number: DE-VERTEX PHARMACEUTICALS (CANADA)-2014-002736

PATIENT

DRUGS (4)
  1. PEGINTERFERON ALFA 2A [Suspect]
     Active Substance: PEGINTERFERON ALFA-2A
     Indication: CHRONIC HEPATITIS C
     Dosage: UNK
     Route: 065
     Dates: start: 201109, end: 201302
  2. RIBAVIRIN. [Suspect]
     Active Substance: RIBAVIRIN
     Indication: CHRONIC HEPATITIS C
     Dosage: UNK
     Route: 065
     Dates: start: 201109, end: 201302
  3. INCIVO [Suspect]
     Active Substance: TELAPREVIR
     Indication: CHRONIC HEPATITIS C
     Route: 048
     Dates: start: 201109, end: 201302
  4. PEGINTERFERON ALFA 2B [Suspect]
     Active Substance: PEGINTERFERON ALFA-2B
     Indication: CHRONIC HEPATITIS C
     Dosage: UNK
     Route: 065
     Dates: start: 201109, end: 201302

REACTIONS (17)
  - Insomnia [Unknown]
  - Neutropenia [Unknown]
  - Rash [Unknown]
  - Fatigue [Unknown]
  - Drug ineffective [Unknown]
  - Mental disorder [Unknown]
  - Thrombocytopenia [Unknown]
  - Anaemia [Unknown]
  - Anorectal discomfort [Unknown]
  - Dysgeusia [Unknown]
  - Treatment failure [Unknown]
  - Gastrointestinal disorder [Unknown]
  - Influenza like illness [Unknown]
  - Death [Fatal]
  - Autoimmune thyroiditis [Unknown]
  - Bronchopulmonary disease [Unknown]
  - Viral load increased [Unknown]
